FAERS Safety Report 20746456 (Version 1)
Quarter: 2022Q2

REPORT INFORMATION
  Report Type: Spontaneous
  Country: US (occurrence: US)
  Receive Date: 20220425
  Receipt Date: 20220425
  Transmission Date: 20220721
  Serious: No
  Sender: FDA-Public Use
  Company Number: US-PFIZER INC-202200150425

PATIENT
  Age: 74 Year
  Sex: Female

DRUGS (2)
  1. IBRANCE [Suspect]
     Active Substance: PALBOCICLIB
     Indication: Breast cancer
     Dosage: 100 MG, CYCLIC (QD 21D)
     Route: 048
     Dates: start: 20220111
  2. IBRANCE [Suspect]
     Active Substance: PALBOCICLIB
     Dosage: 100 MG
     Dates: start: 20220224

REACTIONS (7)
  - COVID-19 [Unknown]
  - Malaise [Unknown]
  - Pyrexia [Recovered/Resolved]
  - Fatigue [Unknown]
  - Oral pain [Unknown]
  - Blood test abnormal [Unknown]
  - Alopecia [Unknown]
